FAERS Safety Report 4649509-6 (Version None)
Quarter: 2005Q2

REPORT INFORMATION
  Report Type: 
  Country: None (occurrence: None)
  Receive Date: 20050331
  Receipt Date: 20041228
  Transmission Date: 20051028
  Serious: No
  Sender: FDA-Public Use
  Company Number: 05P-163-0285115-00

PATIENT
  Sex: Female

DRUGS (10)
  1. HUMIRA [Suspect]
     Indication: RHEUMATOID ARTHRITIS
     Dosage: 40 MG, 1 IN 2 WK, SUBCUTANEOUS
     Route: 058
     Dates: start: 20041129
  2. FELODIPINE [Concomitant]
  3. LANSOPRAZOLE [Concomitant]
  4. ESTROGENS CONJUGATED [Concomitant]
  5. PREDNISONE TAB [Concomitant]
  6. HYDROXYCHLOROQUINE PHOSPHATE [Concomitant]
  7. FOLIC ACID [Concomitant]
  8. GLUCOSAMINE [Concomitant]
  9. CALCIUM CARBONATE [Concomitant]
  10. METHOTREXATE [Concomitant]

REACTIONS (1)
  - HERPES ZOSTER [None]
